FAERS Safety Report 7061237-9 (Version None)
Quarter: 2010Q4

REPORT INFORMATION
  Report Type: 
  Country: None (occurrence: None)
  Receive Date: 20101026
  Receipt Date: 20101014
  Transmission Date: 20110411
  Serious: No
  Sender: FDA-Public Use
  Company Number: US-PFIZER INC-2010131577

PATIENT
  Sex: Male
  Weight: 68.481 kg

DRUGS (2)
  1. LIPITOR [Suspect]
     Indication: BLOOD CHOLESTEROL INCREASED
     Dosage: 10 MG, 1X/DAY
     Route: 048
     Dates: start: 20060801
  2. PEPCID [Concomitant]
     Indication: GASTRIC DISORDER
     Dosage: 20 MG, UNK

REACTIONS (1)
  - MUSCULOSKELETAL PAIN [None]
